FAERS Safety Report 8238335-7 (Version None)
Quarter: 2012Q1

REPORT INFORMATION
  Report Type: 
  Country: None (occurrence: None)
  Receive Date: 20120326
  Receipt Date: 20120313
  Transmission Date: 20120608
  Serious: Yes (Other)
  Sender: FDA-Public Use
  Company Number: DSA_55708_2012

PATIENT
  Age: 28 Year
  Sex: Female

DRUGS (1)
  1. FLAGYL [Suspect]
     Indication: PRODUCT USED FOR UNKNOWN INDICATION
     Dosage: (DF ORAL)
     Route: 048
     Dates: start: 20120201

REACTIONS (6)
  - ALCOHOL INTOLERANCE [None]
  - VAGINAL HAEMORRHAGE [None]
  - ERYTHEMA [None]
  - TACHYCARDIA [None]
  - VOMITING [None]
  - DRY MOUTH [None]
